FAERS Safety Report 9253640 (Version 3)
Quarter: 2013Q3

REPORT INFORMATION
  Report Type: Report from Study
  Country: BR (occurrence: BR)
  Receive Date: 20130425
  Receipt Date: 20130805
  Transmission Date: 20140515
  Serious: Yes (Hospitalization, Disabling)
  Sender: FDA-Public Use
  Company Number: BR-ROCHE-1218188

PATIENT
  Sex: Female

DRUGS (4)
  1. MABTHERA [Suspect]
     Indication: RHEUMATOID ARTHRITIS
     Route: 042
     Dates: start: 20100901
  2. METHOTREXATE [Concomitant]
  3. CARDILOL [Concomitant]
     Indication: CARDIAC DISORDER
  4. MACRODANTIN [Concomitant]
     Indication: URINARY TRACT INFECTION

REACTIONS (3)
  - Hip fracture [Not Recovered/Not Resolved]
  - Pneumonia [Unknown]
  - Abasia [Unknown]
